FAERS Safety Report 4449114-0 (Version None)
Quarter: 2004Q3

REPORT INFORMATION
  Report Type: 
  Country: None (occurrence: None)
  Receive Date: 20040909
  Receipt Date: 20040831
  Transmission Date: 20050211
  Serious: Yes (Other)
  Sender: FDA-Public Use
  Company Number: 2004US001053

PATIENT
  Age: 4 Year
  Sex: Male

DRUGS (4)
  1. PROGRAF [Suspect]
     Indication: RENAL TRANSPLANT
  2. DACLIZUMAB (DACLIZUMAB) [Concomitant]
  3. MYCOPHENOLATE MOFETIL (MYCOPHENOLATE MOFETIL) [Concomitant]
  4. METHYLPREDNISOLONE [Concomitant]

REACTIONS (2)
  - URETERAL NECROSIS [None]
  - URINARY TRACT DISORDER [None]
